FAERS Safety Report 12788913 (Version 2)
Quarter: 2016Q4

REPORT INFORMATION
  Report Type: Spontaneous
  Country: US (occurrence: US)
  Receive Date: 20160928
  Receipt Date: 20161216
  Transmission Date: 20170207
  Serious: No
  Sender: FDA-Public Use
  Company Number: US-PFIZER INC-2016316387

PATIENT
  Sex: Female

DRUGS (5)
  1. DOXORUBICIN HCL [Suspect]
     Active Substance: DOXORUBICIN HYDROCHLORIDE
     Dosage: UNK (200 MG/100ML (2MG/ML))
  2. DOXORUBICIN HCL [Suspect]
     Active Substance: DOXORUBICIN HYDROCHLORIDE
     Indication: NEOPLASM MALIGNANT
     Dosage: 115 MG, UNK (EVERY 2 WEEKS)
     Route: 042
     Dates: start: 20160523, end: 20160705
  3. CYCLOPHOSPHAMIDE. [Concomitant]
     Active Substance: CYCLOPHOSPHAMIDE
     Indication: NEOPLASM MALIGNANT
     Dosage: 1130 MG, UNK (56 D; Q 2 WEEKS)
     Dates: start: 20160523, end: 20160705
  4. ALOXI [Concomitant]
     Active Substance: PALONOSETRON HYDROCHLORIDE
     Indication: NAUSEA
     Dosage: 0.25 MG, UNK (56 D; Q 2 WEEKS)
     Dates: start: 20160523, end: 20160705
  5. EMEND [Concomitant]
     Active Substance: APREPITANT
     Indication: NAUSEA
     Dosage: 150 MG, UNK (56 D; Q 2 WEEKS)
     Dates: start: 20160523, end: 20160705

REACTIONS (3)
  - Liquid product physical issue [Unknown]
  - Poor quality drug administered [Unknown]
  - Product colour issue [Unknown]
